FAERS Safety Report 10404207 (Version 1)
Quarter: 2014Q1

REPORT INFORMATION
  Report Type: Spontaneous
  Country: US (occurrence: None)
  Receive Date: 20140107
  Receipt Date: 20140107
  Transmission Date: 20141002
  Serious: Yes (Other)
  Sender: FDA-Public Use
  Company Number: 2010AP000975

PATIENT
  Age: 35 Year
  Sex: Male

DRUGS (1)
  1. LEVETIRACETAM TABLETS [Suspect]
     Indication: PARTIAL SEIZURES

REACTIONS (3)
  - Thrombocytopenia [None]
  - Therapeutic response decreased [None]
  - Complex partial seizures [None]
